FAERS Safety Report 4361164-1 (Version None)
Quarter: 2004Q2

REPORT INFORMATION
  Report Type: 
  Country: None (occurrence: None)
  Receive Date: 20040507
  Receipt Date: 20031028
  Transmission Date: 20050107
  Serious: Yes (Hospitalization, Other)
  Sender: FDA-Public Use
  Company Number: PHEH2003US09958

PATIENT
  Age: 32 Year
  Sex: Female
  Weight: 65.8 kg

DRUGS (1)
  1. TEGRETOL [Suspect]
     Indication: CONVULSION
     Dosage: 800 MG, QD, ORAL
     Route: 048
     Dates: start: 19880101

REACTIONS (2)
  - BRAIN LOBECTOMY [None]
  - CONVULSION [None]
